FAERS Safety Report 23286910 (Version 1)
Quarter: 2023Q4

REPORT INFORMATION
  Report Type: Spontaneous
  Country: CN (occurrence: CN)
  Receive Date: 20231212
  Receipt Date: 20231212
  Transmission Date: 20240110
  Serious: Yes (Other)
  Sender: FDA-Public Use
  Company Number: CN-AMGEN-CHNSP2023217139

PATIENT
  Age: 49 Year
  Sex: Male

DRUGS (9)
  1. XGEVA [Suspect]
     Active Substance: DENOSUMAB
     Indication: Leiomyosarcoma metastatic
     Dosage: 120 MILLIGRAM, Q4WK
     Route: 065
  2. DOXORUBICIN [Concomitant]
     Active Substance: DOXORUBICIN
     Indication: Leiomyosarcoma
     Dosage: 75 MILLIGRAM PER SQUARE METER, Q3WK
     Route: 065
  3. IFOSFAMIDE [Concomitant]
     Active Substance: IFOSFAMIDE
     Indication: Leiomyosarcoma
     Dosage: 1.8 GRAM PER SQUARE METER
  4. IFOSFAMIDE [Concomitant]
     Active Substance: IFOSFAMIDE
     Dosage: 1.8 GRAM PER SQUARE METER
     Route: 065
  5. CATEQUENTINIB [Concomitant]
     Active Substance: CATEQUENTINIB
     Indication: Leiomyosarcoma
     Dosage: 12 MILLIGRAM, Q3WK FOR SEVEN CYCLES
     Route: 065
     Dates: start: 202006, end: 202010
  6. GEMCITABINE [Concomitant]
     Active Substance: GEMCITABINE
     Indication: Leiomyosarcoma
     Dosage: 1000 MILLIGRAM PER SQUARE METER ON DAY 1 AND 8 FOR SIX CYCLES
  7. ERIBULIN [Concomitant]
     Active Substance: ERIBULIN
     Indication: Leiomyosarcoma
     Dosage: 1.4 MILLIGRAM PER SQUARE METER, ON DAYS 1 AND DAYS 8
     Route: 042
     Dates: start: 202109
  8. PENPULIMAB [Concomitant]
     Active Substance: PENPULIMAB
     Indication: Leiomyosarcoma
     Dosage: 200 MILLIGRAM, Q3WK
     Route: 042
  9. LENVATINIB [Concomitant]
     Active Substance: LENVATINIB
     Indication: Leiomyosarcoma
     Dosage: 8 MILLIGRAM, QD

REACTIONS (4)
  - Hypothyroidism [Unknown]
  - Leiomyosarcoma metastatic [Unknown]
  - Osteoarthritis [Unknown]
  - Therapy partial responder [Unknown]
